FAERS Safety Report 11064302 (Version 2)
Quarter: 2016Q1

REPORT INFORMATION
  Report Type: Spontaneous
  Country: US (occurrence: US)
  Receive Date: 20150424
  Receipt Date: 20160303
  Transmission Date: 20160525
  Serious: Yes (Hospitalization, Other)
  Sender: FDA-Public Use
  Company Number: US-009507513-1504USA014571

PATIENT
  Age: 69 Year
  Sex: Male

DRUGS (9)
  1. NEXIUM [Suspect]
     Active Substance: ESOMEPRAZOLE MAGNESIUM
     Indication: GASTROOESOPHAGEAL REFLUX DISEASE
     Dosage: 1 PILL, 20 MG
     Dates: start: 2015, end: 2015
  2. PRINIVIL [Interacting]
     Active Substance: LISINOPRIL
     Indication: VASODILATATION
     Dosage: 40 MG PILL ONCE DAILY
     Route: 048
     Dates: start: 2006, end: 2015
  3. PREVACID [Suspect]
     Active Substance: LANSOPRAZOLE
     Indication: GASTROOESOPHAGEAL REFLUX DISEASE
     Dosage: 1 PILL DAILY
     Dates: start: 201504, end: 201504
  4. CORTISONE [Suspect]
     Active Substance: CORTISONE\HYDROCORTISONE
     Indication: SWELLING
     Dosage: UNK
     Dates: end: 20150327
  5. AMLACTIN [Suspect]
     Active Substance: AMMONIUM LACTATE
     Dosage: UNK
  6. PRINIVIL [Interacting]
     Active Substance: LISINOPRIL
     Dosage: 40 MG, QD
     Route: 048
  7. PROTONIX [Interacting]
     Active Substance: PANTOPRAZOLE SODIUM
     Indication: GASTROOESOPHAGEAL REFLUX DISEASE
     Dosage: 1 PILL DAILY
     Route: 048
     Dates: start: 2006, end: 20150303
  8. ATENOLOL. [Concomitant]
     Active Substance: ATENOLOL
     Dosage: 50 MG, 1 PILL DAILY
     Dates: start: 2006
  9. NIFEDIPINE. [Concomitant]
     Active Substance: NIFEDIPINE
     Indication: BLOOD PRESSURE MEASUREMENT
     Dosage: 2 PILL DAILY

REACTIONS (36)
  - Tremor [Not Recovered/Not Resolved]
  - Drug ineffective [Unknown]
  - Abdominal discomfort [Recovered/Resolved]
  - Gastrointestinal pain [Not Recovered/Not Resolved]
  - Heart rate decreased [Unknown]
  - Weight decreased [Recovered/Resolved]
  - Urticaria [Unknown]
  - Arthralgia [Recovered/Resolved]
  - Infection [Unknown]
  - Erythema [Unknown]
  - Joint swelling [Not Recovered/Not Resolved]
  - Polypectomy [Unknown]
  - Gastrointestinal motility disorder [Not Recovered/Not Resolved]
  - Electrolyte imbalance [Unknown]
  - Blood pressure increased [Unknown]
  - Vision blurred [Not Recovered/Not Resolved]
  - Prostatic disorder [Unknown]
  - Swelling [Unknown]
  - Drug hypersensitivity [Unknown]
  - Urticaria [Recovered/Resolved with Sequelae]
  - Inflammatory bowel disease [Not Recovered/Not Resolved]
  - Nervousness [Unknown]
  - Adverse event [Unknown]
  - Gastrooesophageal reflux disease [Not Recovered/Not Resolved]
  - Drug interaction [Unknown]
  - Chest pain [Unknown]
  - Peripheral swelling [Not Recovered/Not Resolved]
  - Flatulence [Unknown]
  - Seizure [Recovered/Resolved]
  - Intestinal ulcer [Not Recovered/Not Resolved]
  - Contusion [Not Recovered/Not Resolved]
  - Back pain [Recovered/Resolved]
  - Hypertensive crisis [Unknown]
  - Blood sodium increased [Unknown]
  - Venous occlusion [Unknown]
  - Feeling jittery [Unknown]

NARRATIVE: CASE EVENT DATE: 2006
